FAERS Safety Report 4682596-8 (Version None)
Quarter: 2005Q2

REPORT INFORMATION
  Report Type: 
  Country: None (occurrence: None)
  Receive Date: 20050602
  Receipt Date: 20050414
  Transmission Date: 20051028
  Serious: No
  Sender: FDA-Public Use
  Company Number: USA050495665

PATIENT
  Sex: Male

DRUGS (2)
  1. CYMBALTA [Suspect]
     Indication: DEPRESSION
     Dosage: 30 MG
     Dates: start: 20050413
  2. XANAX (ALPRAZOLAM DUM) [Concomitant]

REACTIONS (4)
  - ASTHENIA [None]
  - MUSCULOSKELETAL STIFFNESS [None]
  - STOMACH DISCOMFORT [None]
  - VOMITING [None]
